FAERS Safety Report 8120108-7 (Version None)
Quarter: 2012Q1

REPORT INFORMATION
  Report Type: 
  Country: None (occurrence: None)
  Receive Date: 20120207
  Receipt Date: 20120125
  Transmission Date: 20120608
  Serious: Yes (Other)
  Sender: FDA-Public Use
  Company Number: IL-ELI_LILLY_AND_COMPANY-IL201201007730

PATIENT
  Sex: Female
  Weight: 73 kg

DRUGS (5)
  1. IRON [Concomitant]
  2. LEVOTHYROXINE SODIUM [Concomitant]
     Indication: HYPOTHYROIDISM
  3. FORTEO [Suspect]
     Indication: OSTEOPOROSIS
     Dosage: 20 UG, QD
     Route: 058
     Dates: start: 20100802
  4. DERALIN [Concomitant]
     Indication: CARDIAC DISORDER
     Dosage: 10 MG, TID
  5. SIMVASTATIN [Concomitant]
     Indication: HYPERCHOLESTEROLAEMIA
     Dosage: 10 MG, OTHER

REACTIONS (3)
  - PRURITUS [None]
  - RASH [None]
  - HIP FRACTURE [None]
